FAERS Safety Report 5826063-4 (Version None)
Quarter: 2008Q3

REPORT INFORMATION
  Report Type: 
  Country: None (occurrence: None)
  Receive Date: 20080729
  Receipt Date: 20080722
  Transmission Date: 20090109
  Serious: Yes (Other)
  Sender: FDA-Public Use
  Company Number: US-JNJFOC-20060906249

PATIENT
  Sex: Female

DRUGS (7)
  1. RISPERDAL [Suspect]
  2. RISPERDAL [Suspect]
  3. RISPERDAL [Suspect]
  4. RISPERDAL [Suspect]
  5. RISPERDAL [Suspect]
     Indication: ATTENTION DEFICIT/HYPERACTIVITY DISORDER
  6. RISPERDAL [Suspect]
     Indication: BIPOLAR DISORDER
  7. CLONIDINE [Concomitant]

REACTIONS (2)
  - HYPOTHYROIDISM [None]
  - SOMNOLENCE [None]
